FAERS Safety Report 9490423 (Version 1)
Quarter: 2013Q3

REPORT INFORMATION
  Report Type: Spontaneous
  Country: GB (occurrence: GB)
  Receive Date: 20130830
  Receipt Date: 20130830
  Transmission Date: 20140515
  Serious: Yes (Other)
  Sender: FDA-Public Use
  Company Number: GB-ASTRAZENECA-2013SE64879

PATIENT
  Age: 63 Year
  Sex: Female

DRUGS (5)
  1. FASLODEX [Suspect]
     Indication: BREAST CANCER METASTATIC
     Route: 030
  2. LANSOPRAZOLE [Concomitant]
  3. OXYCODONE [Concomitant]
  4. PREGABALIN [Concomitant]
  5. TRIMETHOPRIM [Concomitant]

REACTIONS (1)
  - Anaphylactoid reaction [Recovered/Resolved]
